FAERS Safety Report 21452329 (Version 1)
Quarter: 2022Q4

REPORT INFORMATION
  Report Type: Spontaneous
  Country: US (occurrence: None)
  Receive Date: 20221012
  Receipt Date: 20221012
  Transmission Date: 20230112
  Serious: Yes (Hospitalization)
  Sender: FDA-Public Use
  Company Number: None

PATIENT
  Sex: Male

DRUGS (1)
  1. ABIRATERONE [Suspect]
     Active Substance: ABIRATERONE
     Dosage: OTHER QUANTITY : 1000;?FREQUENCY : DAILY;?
     Route: 048

REACTIONS (4)
  - Cerebrovascular accident [None]
  - Prostatic specific antigen increased [None]
  - Asthenia [None]
  - Fall [None]
